FAERS Safety Report 19037924 (Version 2)
Quarter: 2021Q2

REPORT INFORMATION
  Report Type: Spontaneous
  Country: US (occurrence: US)
  Receive Date: 20210322
  Receipt Date: 20210423
  Transmission Date: 20210717
  Serious: No
  Sender: FDA-Public Use
  Company Number: US-ALK-ABELLO A/S-2021AA000811

PATIENT

DRUGS (3)
  1. TAE BULK 553 (CANIS LUPUS FAMILIARIS) [Suspect]
     Active Substance: CANIS LUPUS FAMILIARIS SKIN
     Indication: ALLERGY TO ANIMAL
     Dosage: UNK
     Route: 058
     Dates: start: 20200806
  2. ZYRTEC [Concomitant]
     Active Substance: CETIRIZINE HYDROCHLORIDE
     Dosage: UNK
  3. SINGULAIR [Concomitant]
     Active Substance: MONTELUKAST SODIUM
     Dosage: UNK

REACTIONS (2)
  - Condition aggravated [Not Recovered/Not Resolved]
  - Urticaria [Not Recovered/Not Resolved]

NARRATIVE: CASE EVENT DATE: 202009
